FAERS Safety Report 5319498-X (Version None)
Quarter: 2007Q2

REPORT INFORMATION
  Report Type: 
  Country: None (occurrence: None)
  Receive Date: 20070508
  Receipt Date: 20070426
  Transmission Date: 20071010
  Serious: Yes (Hospitalization)
  Sender: FDA-Public Use
  Company Number: BR-ELI_LILLY_AND_COMPANY-BR200705000829

PATIENT
  Age: 87 Year
  Sex: Female

DRUGS (12)
  1. FORTEO [Suspect]
     Indication: OSTEOPOROSIS
  2. FORTEO [Suspect]
     Dosage: 20 UG, DAILY (1/D)
     Route: 058
     Dates: start: 20070426
  3. PREDSIM [Concomitant]
     Indication: ASTHMA
     Dosage: UNK, UNKNOWN
     Route: 048
  4. MIFLONIDE [Concomitant]
     Indication: ASTHMA
     Dosage: 400 MG, UNKNOWN
     Route: 065
  5. METRONIDAZOLE [Concomitant]
     Indication: ASTHMA
     Dosage: UNK, UNKNOWN
     Route: 048
  6. FLUIMUCIL [Concomitant]
     Indication: ASTHMA
     Dosage: 600 MG, DAILY (1/D)
     Route: 065
  7. SPIRIVA [Concomitant]
     Indication: ASTHMA
     Dosage: UNK, UNKNOWN
     Route: 048
  8. FORASEQ [Concomitant]
     Indication: ASTHMA
     Dosage: UNK, UNKNOWN
     Route: 065
  9. BAMIFIX [Concomitant]
     Indication: ASTHMA
     Dosage: 300 MG, UNKNOWN
     Route: 065
  10. AMARYL [Concomitant]
     Indication: DIABETES MELLITUS
     Dosage: 2 MG, DAILY (1/D)
     Route: 048
  11. RIVOTRIL [Concomitant]
     Indication: DEPRESSION
     Dosage: UNK, UNKNOWN
     Route: 048
  12. STABLON [Concomitant]
     Indication: DEMENTIA ALZHEIMER'S TYPE
     Dosage: UNK, UNKNOWN
     Route: 048

REACTIONS (2)
  - ERYTHEMA [None]
  - PNEUMONIA [None]
